FAERS Safety Report 12751877 (Version 1)
Quarter: 2016Q3

REPORT INFORMATION
  Report Type: Spontaneous
  Country: FR (occurrence: FR)
  Receive Date: 20160915
  Receipt Date: 20160915
  Transmission Date: 20161109
  Serious: Yes (Hospitalization)
  Sender: FDA-Public Use
  Company Number: FR-JAZZ-2016-FR-014696

PATIENT

DRUGS (7)
  1. ERWINASE [Suspect]
     Active Substance: ASPARAGINASE ERWINIA CHRYSANTHEMI
     Dosage: 17000 IU, DAY 8
     Dates: start: 20160216, end: 20160216
  2. VINCRISTINE [Concomitant]
     Active Substance: VINCRISTINE
     Indication: T-CELL LYMPHOMA
     Dosage: REINDUCTION
     Dates: start: 20160208
  3. ERWINASE [Suspect]
     Active Substance: ASPARAGINASE ERWINIA CHRYSANTHEMI
     Dosage: 17000 IU, REINDUCTION
     Dates: start: 20160208
  4. DOXORUBICIN [Concomitant]
     Active Substance: DOXORUBICIN
     Indication: T-CELL LYMPHOMA
     Dosage: REINDUCTION
     Dates: start: 20160208
  5. DOXORUBICIN [Concomitant]
     Active Substance: DOXORUBICIN
     Dosage: UNK
     Route: 042
     Dates: start: 20160216
  6. VINCRISTINE [Concomitant]
     Active Substance: VINCRISTINE
     Dosage: DAY 8
     Dates: start: 20160216
  7. ERWINASE [Suspect]
     Active Substance: ASPARAGINASE ERWINIA CHRYSANTHEMI
     Indication: T-CELL LYMPHOMA
     Dosage: 41 ML OF 50 ML INFUSED.
     Route: 042
     Dates: start: 20160217

REACTIONS (2)
  - Vomiting [Recovered/Resolved]
  - Abdominal pain [Recovered/Resolved]

NARRATIVE: CASE EVENT DATE: 20160216
